FAERS Safety Report 15844297 (Version 1)
Quarter: 2019Q1

REPORT INFORMATION
  Report Type: Spontaneous
  Country: US (occurrence: US)
  Receive Date: 20190118
  Receipt Date: 20190118
  Transmission Date: 20190417
  Serious: No
  Sender: FDA-Public Use
  Company Number: US-SA-2019SA010585

PATIENT
  Sex: Female

DRUGS (1)
  1. GOLD BOND ULTIMATE HAND SANITIZER MOISTURIZER [Suspect]
     Active Substance: BENZETHONIUM CHLORIDE

REACTIONS (1)
  - Dry skin [Unknown]
